FAERS Safety Report 10144968 (Version 3)
Quarter: 2015Q1

REPORT INFORMATION
  Report Type: Spontaneous
  Country: CR (occurrence: CR)
  Receive Date: 20140430
  Receipt Date: 20150209
  Transmission Date: 20150720
  Serious: Yes (Hospitalization, Other)
  Sender: FDA-Public Use
  Company Number: CR-ROCHE-1363744

PATIENT
  Age: 66 Year
  Sex: Male
  Weight: 80 kg

DRUGS (4)
  1. AVASTIN [Suspect]
     Active Substance: BEVACIZUMAB
     Indication: NON-SMALL CELL LUNG CANCER
     Route: 042
     Dates: start: 201107, end: 201401
  2. DOCETAXEL. [Concomitant]
     Active Substance: DOCETAXEL
     Indication: NON-SMALL CELL LUNG CANCER
  3. ENOXACIN [Concomitant]
     Active Substance: ENOXACIN
  4. AMIODARONE [Concomitant]
     Active Substance: AMIODARONE

REACTIONS (7)
  - Atrial fibrillation [Recovered/Resolved]
  - Pulmonary oedema [Recovered/Resolved]
  - Myocarditis [Unknown]
  - Posterior reversible encephalopathy syndrome [Recovered/Resolved]
  - Thrombocytopenia [Recovered/Resolved]
  - Pneumonitis [Unknown]
  - Inflammation [Unknown]

NARRATIVE: CASE EVENT DATE: 201311
